FAERS Safety Report 13238320 (Version 1)
Quarter: 2017Q1

REPORT INFORMATION
  Report Type: Spontaneous
  Country: US (occurrence: US)
  Receive Date: 20170215
  Receipt Date: 20170215
  Transmission Date: 20170428
  Serious: Yes (Hospitalization, Disabling)
  Sender: FDA-Public Use
  Company Number: None

PATIENT
  Age: 2 Year
  Sex: Female
  Weight: 10.35 kg

DRUGS (3)
  1. MULTIVITAMIN [Concomitant]
     Active Substance: VITAMINS
  2. PROBIOTIC [Concomitant]
     Active Substance: PROBIOTICS NOS
  3. MIRALAX [Suspect]
     Active Substance: POLYETHYLENE GLYCOL 3350
     Indication: CONSTIPATION
     Dosage: ?          QUANTITY:1 TABLESPOON(S);?
     Route: 048
     Dates: start: 20161107, end: 20170209

REACTIONS (12)
  - Screaming [None]
  - Sleep disorder [None]
  - Dyspnoea [None]
  - Staring [None]
  - Abdominal pain upper [None]
  - Wheezing [None]
  - Anhedonia [None]
  - Aggression [None]
  - Tremor [None]
  - Anger [None]
  - Confusional state [None]
  - Exophthalmos [None]

NARRATIVE: CASE EVENT DATE: 20170215
